FAERS Safety Report 15428362 (Version 1)
Quarter: 2018Q3

REPORT INFORMATION
  Report Type: Spontaneous
  Country: DE (occurrence: DE)
  Receive Date: 20180926
  Receipt Date: 20180926
  Transmission Date: 20181010
  Serious: Yes (Hospitalization)
  Sender: FDA-Public Use
  Company Number: DE-TEVA-2018-DE-945296

PATIENT
  Age: 83 Year
  Sex: Male

DRUGS (13)
  1. RAMIPRIL. [Concomitant]
     Active Substance: RAMIPRIL
     Dosage: 10 MILLIGRAM DAILY; ?APPLICATION FOR YEARS
     Route: 048
  2. RISPERIDON [Suspect]
     Active Substance: RISPERIDONE
     Indication: RESTLESSNESS
     Dosage: .5 MILLIGRAM DAILY;
     Route: 048
     Dates: start: 20180303
  3. MELPERON [Interacting]
     Active Substance: MELPERONE
     Indication: DELUSION
     Dosage: 50 MILLIGRAM DAILY;
     Route: 048
     Dates: start: 20180304, end: 20180305
  4. TARGIN [Concomitant]
     Active Substance: NALOXONE HYDROCHLORIDE\OXYCODONE HYDROCHLORIDE
     Dosage: 20 MILLIGRAM DAILY; ?APPLICATION FOR MONTHS
     Route: 048
  5. SIMVASTATIN. [Concomitant]
     Active Substance: SIMVASTATIN
     Dosage: 20 MILLIGRAM DAILY; APPLICATION FOR YEARS
     Route: 048
  6. ASS 100 [Concomitant]
     Active Substance: ASPIRIN
     Dosage: 100 MILLIGRAM DAILY; APPLICATION FOR YEARS
     Route: 048
  7. TORASEMID [Concomitant]
     Active Substance: TORSEMIDE
     Dosage: 10 MILLIGRAM DAILY; ?APPLICATION FOR MONTHS
     Route: 048
  8. L?THYROXIN [Concomitant]
     Active Substance: LEVOTHYROXINE SODIUM
     Dosage: 75 MICROGRAM DAILY; ?APPLICATION FOR YEARS
     Route: 048
  9. MOLSIDOMIN [Concomitant]
     Active Substance: MOLSIDOMINE
     Dosage: 8 MILLIGRAM DAILY; ?APPLICATION FOR YEARS
     Route: 048
  10. PANTOPRAZOL [Concomitant]
     Active Substance: PANTOPRAZOLE SODIUM
     Dosage: 20 MILLIGRAM DAILY; ?APPLICATION FOR WEEKS
     Route: 048
  11. PIPAMPERON [Concomitant]
     Active Substance: PIPAMPERONE HYDROCHLORIDE
     Dosage: 30 MILLIGRAM DAILY;
     Route: 048
     Dates: start: 20180306
  12. PIPAMPERON [Concomitant]
     Active Substance: PIPAMPERONE HYDROCHLORIDE
     Route: 048
     Dates: start: 20180302, end: 201803
  13. MELPERON [Interacting]
     Active Substance: MELPERONE
     Indication: RESTLESSNESS
     Dosage: 25 MILLIGRAM DAILY;
     Route: 048
     Dates: start: 20180303, end: 20180303

REACTIONS (2)
  - Drug interaction [Unknown]
  - Pleurothotonus [Recovered/Resolved]

NARRATIVE: CASE EVENT DATE: 2018
